FAERS Safety Report 8974549 (Version 1)
Quarter: 2012Q4

REPORT INFORMATION
  Report Type: 
  Country: NL (occurrence: NL)
  Receive Date: 20121220
  Receipt Date: 20121220
  Transmission Date: 20130627
  Serious: Yes (Other)
  Sender: FDA-Public Use
  Company Number: NL-ASTRAZENECA-2012SE93202

PATIENT
  Age: 53 Year
  Sex: Male
  Weight: 84 kg

DRUGS (8)
  1. CRESTOR [Suspect]
     Dosage: ONE DF DAILY, OTHER BRAND
     Route: 048
     Dates: start: 1999, end: 2011
  2. CRESTOR [Suspect]
     Route: 048
     Dates: start: 1999, end: 2011
  3. LIPITOR [Suspect]
     Route: 048
     Dates: start: 1999, end: 2011
  4. BEZALIP [Suspect]
     Route: 048
     Dates: start: 1999, end: 2011
  5. EZETROL [Suspect]
     Route: 048
     Dates: start: 1999, end: 2011
  6. ZOCOR [Suspect]
     Route: 048
     Dates: start: 1999, end: 2011
  7. ZOCOR [Suspect]
     Route: 048
     Dates: start: 1999, end: 2011
  8. PREDNISON [Concomitant]
     Dosage: LONG TERM USE

REACTIONS (1)
  - Tendonitis [Recovered/Resolved]
